FAERS Safety Report 16383990 (Version 1)
Quarter: 2019Q2

REPORT INFORMATION
  Report Type: Spontaneous
  Country: US (occurrence: US)
  Receive Date: 20190426
  Receipt Date: 20190426
  Transmission Date: 20190711
  Serious: No
  Sender: FDA-Public Use
  Company Number: None

PATIENT
  Age: 38 Year
  Sex: Male

DRUGS (1)
  1. COSENTYX [Suspect]
     Active Substance: SECUKINUMAB
     Route: 058
     Dates: start: 20190419

REACTIONS (4)
  - Diarrhoea [None]
  - Nasopharyngitis [None]
  - Abdominal pain upper [None]
  - Oropharyngeal pain [None]

NARRATIVE: CASE EVENT DATE: 20190421
